FAERS Safety Report 9143567 (Version 2)
Quarter: 2013Q1

REPORT INFORMATION
  Report Type: Spontaneous
  Country: US (occurrence: US)
  Receive Date: 20130306
  Receipt Date: 20130328
  Transmission Date: 20140127
  Serious: No
  Sender: FDA-Public Use
  Company Number: PHEH2013US005148

PATIENT
  Sex: Male
  Weight: 77.98 kg

DRUGS (2)
  1. GILENYA [Suspect]
     Indication: MULTIPLE SCLEROSIS
     Dosage: 0.5 MG, QD
     Route: 048
     Dates: start: 20120817, end: 20120928
  2. ZOLOFT [Concomitant]
     Dosage: UNK UKN, UNK

REACTIONS (1)
  - Drug ineffective [Unknown]
